FAERS Safety Report 10082009 (Version 1)
Quarter: 2014Q2

REPORT INFORMATION
  Report Type: Spontaneous
  Country: US (occurrence: US)
  Receive Date: 20140416
  Receipt Date: 20140416
  Transmission Date: 20141212
  Serious: No
  Sender: FDA-Public Use
  Company Number: US-PFIZER INC-2014102687

PATIENT
  Age: 67 Year
  Sex: Female

DRUGS (2)
  1. GLIPIZIDE XL [Suspect]
     Indication: BLOOD GLUCOSE INCREASED
     Dosage: 20 MG (TWO TABLETS OF 10MG IN A MORNING), 1X/DAY
     Route: 048
  2. HYDROCHLOROTHIAZIDE [Concomitant]
     Indication: HYPERTENSION
     Dosage: UNK

REACTIONS (1)
  - Medication residue present [Unknown]
